FAERS Safety Report 9437875 (Version 1)
Quarter: 2013Q3

REPORT INFORMATION
  Report Type: Spontaneous
  Country: US (occurrence: US)
  Receive Date: 20130802
  Receipt Date: 20130802
  Transmission Date: 20140515
  Serious: No
  Sender: FDA-Public Use
  Company Number: US-BRISTOL-MYERS SQUIBB COMPANY-18720219

PATIENT
  Age: 81 Year
  Sex: Female

DRUGS (7)
  1. ORENCIA [Suspect]
     Dosage: ORENCIA FOR AT LEAST 4 YEARS
     Dates: start: 2010
  2. WARFARIN SODIUM [Suspect]
     Indication: PULMONARY EMBOLISM
     Route: 048
     Dates: start: 1996
  3. AMLODIPINE [Concomitant]
  4. CLOPIDOGREL BISULFATE [Concomitant]
  5. FUROSEMIDE [Concomitant]
  6. CALCIUM [Concomitant]
  7. VITAMIN D [Concomitant]

REACTIONS (1)
  - Iron deficiency anaemia [Unknown]
